FAERS Safety Report 8207456-7 (Version None)
Quarter: 2012Q1

REPORT INFORMATION
  Report Type: 
  Country: None (occurrence: None)
  Receive Date: 20120227
  Receipt Date: 20111115
  Transmission Date: 20120608
  Serious: No
  Sender: FDA-Public Use
  Company Number: 339509

PATIENT
  Age: 65 Year
  Sex: Female
  Weight: 136.1 kg

DRUGS (10)
  1. METOPROLOL SUCCINATE [Concomitant]
  2. FEXOFENADINE HCL [Concomitant]
  3. ASPIRIN [Concomitant]
  4. RANITIDINE HYDROCHLORIDE [Concomitant]
  5. AVAPRO [Concomitant]
  6. TRAMADOL HCL [Concomitant]
  7. POTASSIUM CHLORIDE [Concomitant]
  8. VICTOZA [Suspect]
     Indication: TYPE 2 DIABETES MELLITUS
     Dosage: 1.8 MG, QD, SUBCUTANEOUS
     Route: 058
     Dates: start: 20100101
  9. METFORMIN HCL [Concomitant]
  10. AMLODIPINE BESYLATE [Concomitant]

REACTIONS (2)
  - INSOMNIA [None]
  - HALLUCINATION, VISUAL [None]
